FAERS Safety Report 19057587 (Version 1)
Quarter: 2021Q1

REPORT INFORMATION
  Report Type: Spontaneous
  Country: US (occurrence: US)
  Receive Date: 20210324
  Receipt Date: 20210324
  Transmission Date: 20210420
  Serious: No
  Sender: FDA-Public Use
  Company Number: US-ELI_LILLY_AND_COMPANY-US202103009921

PATIENT
  Age: 67 Year
  Sex: Female

DRUGS (5)
  1. OCTREOTIDE. [Concomitant]
     Active Substance: OCTREOTIDE
     Indication: HYPERTENSION
     Route: 065
  2. RETEVMO [Suspect]
     Active Substance: SELPERCATINIB
     Indication: MEDULLARY THYROID CANCER
     Dosage: 120 MG
     Route: 065
     Dates: start: 20210303
  3. RETEVMO [Suspect]
     Active Substance: SELPERCATINIB
     Dosage: 40 MG, BID
     Route: 065
  4. RETEVMO [Suspect]
     Active Substance: SELPERCATINIB
     Dosage: 80 MG, BID
     Route: 065
     Dates: start: 20210307
  5. RETEVMO [Suspect]
     Active Substance: SELPERCATINIB
     Dosage: 40 MG, BID
     Route: 065
     Dates: start: 20210316

REACTIONS (4)
  - Swelling [Recovered/Resolved]
  - Hypertension [Recovered/Resolved]
  - Leukopenia [Unknown]
  - Rash [Recovered/Resolved]
